FAERS Safety Report 14711291 (Version 1)
Quarter: 2018Q2

REPORT INFORMATION
  Report Type: Spontaneous
  Country: US (occurrence: US)
  Receive Date: 20180403
  Receipt Date: 20180403
  Transmission Date: 20180711
  Serious: No
  Sender: FDA-Public Use
  Company Number: US-BAUSCH-BL-2017-018874

PATIENT
  Age: 42 Year
  Sex: Female

DRUGS (3)
  1. CLINDAMYCIN. [Suspect]
     Active Substance: CLINDAMYCIN
     Indication: ACNE CYSTIC
     Route: 065
     Dates: start: 201701
  2. NU-DERM SYSTEM NORMAL-OILY SKIN TRANSFORMATION [Suspect]
     Active Substance: HYDROQUINONE\OCTINOXATE\ZINC OXIDE
     Indication: THERAPEUTIC SKIN CARE TOPICAL
     Route: 061
     Dates: start: 20161012
  3. TRETINOIN CREAM 0.05% [Suspect]
     Active Substance: TRETINOIN
     Indication: THERAPEUTIC SKIN CARE TOPICAL
     Dates: start: 20161012, end: 20170511

REACTIONS (3)
  - Off label use [Recovered/Resolved]
  - Skin hyperpigmentation [Not Recovered/Not Resolved]
  - Acne cystic [Recovering/Resolving]

NARRATIVE: CASE EVENT DATE: 20161012
